FAERS Safety Report 4475557-5 (Version None)
Quarter: 2004Q4

REPORT INFORMATION
  Report Type: 
  Country: None (occurrence: None)
  Receive Date: 20041015
  Receipt Date: 20040831
  Transmission Date: 20050328
  Serious: Yes (Life-Threatening)
  Sender: FDA-Public Use
  Company Number: JP-MERCK-0409USA00291

PATIENT
  Age: 70 Year
  Sex: Female

DRUGS (3)
  1. PRIMAXIN [Suspect]
     Indication: LIVER ABSCESS
     Route: 041
     Dates: start: 20040821, end: 20040823
  2. PRIMAXIN [Suspect]
     Route: 041
     Dates: start: 20040101
  3. RADIOGRAPHIC CONTRAST MEDIUM (UNSPECIFIED) [Suspect]
     Route: 065
     Dates: start: 20040801

REACTIONS (2)
  - BLOOD CREATININE INCREASED [None]
  - RENAL DISORDER [None]
